FAERS Safety Report 15951311 (Version 1)
Quarter: 2019Q1

REPORT INFORMATION
  Report Type: Report from Study
  Country: US (occurrence: US)
  Receive Date: 20190212
  Receipt Date: 20190212
  Transmission Date: 20190417
  Serious: Yes (Death, Other)
  Sender: FDA-Public Use
  Company Number: US-PFIZER INC-2019063276

PATIENT
  Age: 44 Year
  Sex: Male

DRUGS (4)
  1. VINBLASTINE [Suspect]
     Active Substance: VINBLASTINE
     Indication: EXTRAGONADAL PRIMARY GERM CELL TUMOUR
     Dosage: UNK, CYCLIC (GIVEN ON DAY 1 AND REPEATED AT 28-DAY INTERVALS FOR FOUR MONTHS)
     Route: 040
  2. CISPLATIN. [Suspect]
     Active Substance: CISPLATIN
     Indication: EXTRAGONADAL PRIMARY GERM CELL TUMOUR
     Dosage: UNK, CYCLIC (REPEATED AT 28-DAY INTERVALS FOR FOUR MONTHS)
     Route: 040
  3. BLEOMYCIN SULFATE [Suspect]
     Active Substance: BLEOMYCIN SULFATE
     Indication: EXTRAGONADAL PRIMARY GERM CELL TUMOUR
     Dosage: UNK, CYCLIC (DOSE OF 15 U/M2 I.V. OR 1.M. TWICE WEEKLY WITH A TOTAL DOSE OF 200 U/M2 NOT TO BE EXCEE
  4. MANNITOL. [Concomitant]
     Active Substance: MANNITOL
     Dosage: UNK (A 30-60 MINUTE INFUSION OF 50 CC OF 25% MANNITOL AND REPEATED AT 28-DAY INTERVALS FOR FOUR MONT

REACTIONS (3)
  - Toxicity to various agents [Fatal]
  - Leukopenia [Unknown]
  - Thrombocytopenia [Unknown]
